FAERS Safety Report 8365792-8 (Version None)
Quarter: 2012Q2

REPORT INFORMATION
  Report Type: 
  Country: None (occurrence: None)
  Receive Date: 20120517
  Receipt Date: 20120511
  Transmission Date: 20120825
  Serious: Yes (Other)
  Sender: FDA-Public Use
  Company Number: US-AMGEN-USASP2012029933

PATIENT
  Sex: Male

DRUGS (1)
  1. ENBREL [Suspect]
     Indication: RHEUMATOID ARTHRITIS
     Dosage: 50 MG, QWK
     Dates: start: 20010501

REACTIONS (6)
  - CEREBROVASCULAR ACCIDENT [None]
  - MUSCLE TIGHTNESS [None]
  - CONTUSION [None]
  - MYALGIA [None]
  - PRECANCEROUS CELLS PRESENT [None]
  - DIZZINESS [None]
